FAERS Safety Report 8930768 (Version 1)
Quarter: 2012Q4

REPORT INFORMATION
  Report Type: 
  Country: US (occurrence: US)
  Receive Date: 20121121
  Receipt Date: 20121121
  Transmission Date: 20130627
  Serious: Yes (Death)
  Sender: FDA-Public Use
  Company Number: US-ASTELLAS-1088080

PATIENT
  Sex: Female

DRUGS (4)
  1. TARCEVA [Suspect]
     Indication: PANCREATIC CARCINOMA
     Dates: start: 20110805, end: 20111018
  2. IRINOTECAN [Concomitant]
  3. OXALIPLATIN [Concomitant]
  4. EFUDIX [Concomitant]

REACTIONS (1)
  - Disease progression [Fatal]
